FAERS Safety Report 12682175 (Version 1)
Quarter: 2016Q3

REPORT INFORMATION
  Report Type: Spontaneous
  Country: CA (occurrence: CA)
  Receive Date: 20160824
  Receipt Date: 20160824
  Transmission Date: 20161109
  Serious: Yes (Other)
  Sender: FDA-Public Use
  Company Number: CA-BEH-2016071534

PATIENT
  Age: 65 Year
  Sex: Male

DRUGS (6)
  1. PRIVIGEN [Suspect]
     Active Substance: HUMAN IMMUNOGLOBULIN G
     Dosage: 200 ML, TOT
     Route: 065
     Dates: start: 20150322, end: 20150322
  2. FLOVENT [Concomitant]
     Active Substance: FLUTICASONE PROPIONATE
     Dosage: 250 MG, OD
     Route: 055
  3. ASA [Concomitant]
     Active Substance: ASPIRIN
     Dosage: 80 MG, OD
     Route: 065
  4. PRIVIGEN [Suspect]
     Active Substance: HUMAN IMMUNOGLOBULIN G
     Indication: GUILLAIN-BARRE SYNDROME
     Dosage: 1600 ML, TOT
     Route: 065
     Dates: start: 20150322, end: 20150322
  5. PRIVIGEN [Suspect]
     Active Substance: HUMAN IMMUNOGLOBULIN G
     Dosage: 5 G, OD
     Route: 065
     Dates: start: 20150322, end: 20150325
  6. VENTOLIN [Concomitant]
     Active Substance: ALBUTEROL SULFATE
     Dosage: 100 MG, UNK
     Route: 055

REACTIONS (6)
  - Body temperature increased [Unknown]
  - Chromaturia [Recovered/Resolved]
  - Haemoglobin decreased [Recovered/Resolved]
  - Neck pain [Unknown]
  - Haemolysis [Recovered/Resolved]
  - Headache [Recovered/Resolved]

NARRATIVE: CASE EVENT DATE: 20150322
